FAERS Safety Report 24924376 (Version 1)
Quarter: 2025Q1

REPORT INFORMATION
  Report Type: Spontaneous
  Country: US (occurrence: None)
  Receive Date: 20250131
  Receipt Date: 20250131
  Transmission Date: 20250409
  Serious: No
  Sender: FDA-CTU
  Company Number: None

PATIENT
  Age: 72 Year
  Sex: Female
  Weight: 63.5 kg

DRUGS (13)
  1. REPATHA [Suspect]
     Active Substance: EVOLOCUMAB
     Indication: Type V hyperlipidaemia
     Dosage: FREQUENCY : EVERY OTHER WEEK;?
     Route: 058
     Dates: start: 202402, end: 20240311
  2. ALENDRONATE [Concomitant]
     Active Substance: ALENDRONATE SODIUM
  3. URSODIOL [Suspect]
     Active Substance: URSODIOL
  4. MAGNESIUM [Concomitant]
     Active Substance: MAGNESIUM
  5. BIFIDOBACTERIUM SPP. [Concomitant]
     Active Substance: BIFIDOBACTERIUM SPP.
  6. MONTELUKAST [Suspect]
     Active Substance: MONTELUKAST
  7. COENZYME Q10 [Concomitant]
     Active Substance: DIETARY SUPPLEMENT\UBIDECARENONE
  8. TIZANIDINE [Concomitant]
     Active Substance: TIZANIDINE
  9. SUMATRIPTAN [Concomitant]
     Active Substance: SUMATRIPTAN
  10. ELAFIBRANOR [Concomitant]
     Active Substance: ELAFIBRANOR
  11. RIFAXIMIN [Concomitant]
     Active Substance: RIFAXIMIN
  12. ESOMEPRAZOLE SODIUM [Concomitant]
     Active Substance: ESOMEPRAZOLE SODIUM
  13. LOSARTAN [Concomitant]
     Active Substance: LOSARTAN

REACTIONS (5)
  - Flatulence [None]
  - Insomnia [None]
  - Abdominal pain upper [None]
  - Back pain [None]
  - Gastrointestinal microorganism overgrowth [None]

NARRATIVE: CASE EVENT DATE: 20240225
